FAERS Safety Report 21121389 (Version 2)
Quarter: 2022Q3

REPORT INFORMATION
  Report Type: Spontaneous
  Country: US (occurrence: None)
  Receive Date: 20220722
  Receipt Date: 20220830
  Transmission Date: 20221027
  Serious: Yes (Other)
  Sender: FDA-Public Use
  Company Number: 2022A256670

PATIENT
  Age: 25562 Day
  Sex: Female
  Weight: 68 kg

DRUGS (2)
  1. BYDUREON BCISE [Suspect]
     Active Substance: EXENATIDE
     Indication: Diabetes mellitus
     Route: 058
  2. BYDUREON [Suspect]
     Active Substance: EXENATIDE
     Route: 058

REACTIONS (4)
  - Neoplasm malignant [Recovered/Resolved]
  - Injection site haemorrhage [Unknown]
  - Decreased activity [Unknown]
  - Device leakage [Unknown]

NARRATIVE: CASE EVENT DATE: 20220713
